FAERS Safety Report 8837890 (Version 1)
Quarter: 2012Q4

REPORT INFORMATION
  Report Type: 
  Country: DE (occurrence: DE)
  Receive Date: 20121012
  Receipt Date: 20121012
  Transmission Date: 20130627
  Serious: Yes (Death, Life-Threatening, Hospitalization)
  Sender: FDA-Public Use
  Company Number: DE-PFIZER INC-9829348

PATIENT
  Age: 8 Year
  Sex: Male
  Weight: 21 kg

DRUGS (63)
  1. DIFLUCAN [Suspect]
     Indication: CANDIDIASIS
     Dosage: 120 mg, a day
     Route: 042
     Dates: start: 19971110, end: 19971116
  2. TAZOBAC [Suspect]
     Indication: PNEUMONIA
     Dosage: UNK
     Route: 042
     Dates: start: 19971109, end: 19971124
  3. METAMIZOL [Suspect]
     Indication: PYREXIA
     Dosage: UNK
     Route: 042
     Dates: start: 19971107
  4. FORTUM [Suspect]
     Indication: PNEUMONIA
     Dosage: 1 g, 3x/day
     Route: 042
     Dates: start: 19971109, end: 19971124
  5. NOVALGIN [Suspect]
     Dosage: UNK
     Route: 042
     Dates: start: 19971107, end: 19971110
  6. LUMINAL [Concomitant]
     Route: 048
     Dates: start: 19971030, end: 19971104
  7. ZOVIRAX [Concomitant]
     Dosage: 200 mg, UNK
     Route: 048
     Dates: start: 19971030, end: 19971105
  8. ZOVIRAX [Concomitant]
     Dosage: 200 mg, UNK
     Route: 042
     Dates: start: 19971106, end: 19971127
  9. OCTAGAM [Concomitant]
     Dosage: 10 g, 1x/day
     Route: 042
     Dates: start: 19971103, end: 19971111
  10. ZOFRAN [Concomitant]
     Dosage: UNK
     Route: 042
     Dates: start: 19971030, end: 19971114
  11. KCL [Concomitant]
     Dosage: UNK
     Route: 042
     Dates: start: 19971030, end: 19971109
  12. GLUCOSE INJECTION [Concomitant]
     Route: 042
     Dates: start: 19971030
  13. DIAROENT MONO [Concomitant]
     Route: 048
     Dates: start: 19971030
  14. NACL 0.9 % SOLUTION [Concomitant]
     Route: 042
     Dates: start: 19971030
  15. AMPHO MORONAL [Concomitant]
     Route: 042
     Dates: start: 19971030
  16. CHLORHEXAMED [Concomitant]
     Dates: start: 19971030
  17. COTRIMOXAZOL [Concomitant]
     Dosage: UNK
     Route: 048
     Dates: start: 19971030, end: 19971127
  18. MAGNORBIN [Concomitant]
     Dosage: UNK
     Route: 042
     Dates: start: 19971102, end: 19971110
  19. SODIUM GLYCEROPHOSPHATE [Concomitant]
     Dosage: UNK
     Route: 042
     Dates: start: 19971104, end: 19971110
  20. CA - GLUCONATE [Concomitant]
     Dosage: UNK
     Route: 042
     Dates: start: 19971104, end: 19971110
  21. RED BLOOD CELLS, CONCENTRATED [Concomitant]
     Dosage: UNK
     Route: 042
     Dates: start: 19971104, end: 19971109
  22. INZOLEN [Concomitant]
     Dosage: UNK
     Route: 042
     Dates: start: 19971104, end: 19971110
  23. SOLUVIT [Concomitant]
     Route: 042
     Dates: start: 19971104
  24. AMINOPAED [Concomitant]
     Route: 042
     Dates: start: 19971104
  25. VOMEX A [Concomitant]
     Dosage: UNK
     Route: 042
     Dates: start: 19971105, end: 19971105
  26. DORMICUM FOR INJECTION [Concomitant]
     Dosage: 5 mg, 1x/day
     Route: 042
     Dates: start: 19971105, end: 19971105
  27. ATROPIN [Concomitant]
     Dosage: UNK
     Route: 042
     Dates: start: 19971105, end: 19971105
  28. CLEMASTINE FUMARATE [Concomitant]
     Dosage: UNK
     Route: 042
     Dates: start: 19971105, end: 19971105
  29. ACYCLOVIR [Concomitant]
     Dosage: UNK
     Route: 042
     Dates: start: 19971106, end: 19971127
  30. INTRALIPID 20% [Concomitant]
     Route: 042
     Dates: start: 19971107
  31. VITINTRA [Concomitant]
     Route: 042
     Dates: start: 19971107
  32. KONAKION [Concomitant]
     Dosage: UNK
     Route: 042
     Dates: start: 19971108, end: 19971110
  33. MAGALDRAT [Concomitant]
     Dosage: UNK
     Route: 048
     Dates: start: 19971118, end: 19971122
  34. NOVODIGAL [Concomitant]
     Dosage: 0.8 ml, 1x/day
     Route: 042
     Dates: start: 19971109, end: 19971110
  35. DOPAMIN [Concomitant]
     Dosage: 180 mg, 1x/day
     Route: 042
     Dates: start: 19971109, end: 19971112
  36. DOBUTREX [Concomitant]
     Dosage: 180 mg, UNK
     Route: 042
     Dates: start: 19971109, end: 19971112
  37. THROMBOCYTES CONCENTRATED [Concomitant]
     Dosage: UNK
     Route: 042
     Dates: start: 19971109, end: 19971112
  38. HUMAN ALBUMIN 5% [Concomitant]
     Dosage: UNK
     Route: 042
     Dates: start: 19971109, end: 19971125
  39. SUPRARENIN [Concomitant]
     Dosage: 3 mg, 1x/day
     Route: 042
     Dates: start: 19971110, end: 19971110
  40. VETREN [Concomitant]
     Dosage: 2 ml, UNK
     Route: 042
     Dates: start: 19971110, end: 19971110
  41. VETREN [Concomitant]
     Dosage: UNK
     Route: 042
     Dates: start: 19971112, end: 19971113
  42. VALIUM FOR INJECTION [Concomitant]
     Dosage: 2 mg, UNK
     Route: 042
     Dates: start: 19971110, end: 19971110
  43. LEVOMEPROMAZIN [Concomitant]
     Dosage: UNK
     Route: 042
     Dates: start: 19971110, end: 19971111
  44. AMINOPHYLLINE [Concomitant]
     Dosage: UNK
     Route: 042
     Dates: start: 19971110, end: 19971124
  45. RINGER SOLUTION [Concomitant]
     Dosage: UNK
     Route: 042
     Dates: start: 19971110, end: 19971113
  46. TRAVENOL [Concomitant]
     Dosage: UNK
     Route: 042
     Dates: start: 19971112, end: 19971113
  47. VANCOMYCIN [Concomitant]
     Dosage: 250 mg, 4x/day
     Route: 042
     Dates: start: 19971112, end: 19971121
  48. GENTAMYCIN [Concomitant]
     Dates: start: 19971112
  49. IMMUNOGLOBULIN HUMAN NORMAL [Concomitant]
     Dosage: 10 g, 1x/day
     Route: 042
     Dates: start: 19971113, end: 19971113
  50. IMMUNOGLOBULIN HUMAN NORMAL [Concomitant]
     Dosage: UNK
     Route: 042
     Dates: start: 19971113, end: 19971113
  51. POLYVIDON [Concomitant]
     Dosage: UNK
     Dates: start: 19971114, end: 19971124
  52. RANITIDINE [Concomitant]
     Dosage: 150 mg, UNK
     Route: 048
     Dates: start: 19971117, end: 19971117
  53. PARACETAMOL [Concomitant]
     Dosage: 250 mg, UNK
     Route: 048
     Dates: start: 19971117, end: 19971118
  54. ELECTROLYTE SOLUTION [Concomitant]
     Route: 042
     Dates: start: 19971117
  55. ISOPROMETHAZINE [Concomitant]
     Dosage: UNK
     Route: 048
     Dates: start: 19971118, end: 19971118
  56. EUPHYLLIN [Concomitant]
     Dosage: UNK
     Route: 042
     Dates: start: 19971110, end: 19971124
  57. MYLERAN [Concomitant]
     Dosage: UNK
     Route: 048
     Dates: start: 19971030, end: 19971031
  58. NEUPOGEN [Concomitant]
     Dosage: 10 ug/kg day
     Route: 058
     Dates: start: 19971106, end: 19971118
  59. LASIX [Concomitant]
     Dosage: UNK
     Route: 042
     Dates: start: 19971030, end: 19971127
  60. REFOBACIN [Concomitant]
     Dosage: 50 mg, 2x/day
     Route: 042
     Dates: start: 19971110, end: 19971113
  61. KEPINOL [Concomitant]
     Dosage: 60 mg, 2x/day
     Route: 048
     Dates: start: 19971030, end: 19971127
  62. THIOTEPA [Concomitant]
     Dosage: UNK
     Route: 042
     Dates: start: 19971101, end: 19971103
  63. NOVALGIN [Concomitant]
     Dosage: UNK
     Route: 042
     Dates: start: 19971107, end: 19971110

REACTIONS (5)
  - Multi-organ failure [Fatal]
  - Stevens-Johnson syndrome [Unknown]
  - Toxic epidermal necrolysis [Unknown]
  - Conjunctivitis infective [Unknown]
  - Rash maculo-papular [Fatal]
